FAERS Safety Report 9567283 (Version 1)
Quarter: 2013Q3

REPORT INFORMATION
  Report Type: Spontaneous
  Country: US (occurrence: US)
  Receive Date: 20130930
  Receipt Date: 20130930
  Transmission Date: 20140515
  Serious: No
  Sender: FDA-Public Use
  Company Number: US-AMGEN-USASP2012062093

PATIENT
  Age: 70 Year
  Sex: Female
  Weight: 67.12 kg

DRUGS (10)
  1. ENBREL [Suspect]
     Indication: PRODUCT USED FOR UNKNOWN INDICATION
     Dosage: 2 TIMES A WEEK ATLEAST 72-96 HOURS APART
     Route: 058
  2. COZAAR [Concomitant]
     Dosage: 100 MG, UNK
  3. LIPITOR [Concomitant]
     Dosage: 20 MG, UNK
  4. GARLIC                             /01570501/ [Concomitant]
     Dosage: 1500 UNK, UNK
  5. ASPIRIN [Concomitant]
     Dosage: 81 MG, UNK
  6. MULTIVITAMIN                       /00097801/ [Concomitant]
     Dosage: UNK
  7. FISH OIL [Concomitant]
     Dosage: UNK
  8. CALCIUM D-500 [Concomitant]
     Dosage: 500 UNK, UNK
  9. ACTI-B12 [Concomitant]
     Dosage: 1 MG, UNK
  10. REPLESTA [Concomitant]
     Dosage: 50000 UNIT, UNK

REACTIONS (1)
  - Urinary tract infection [Unknown]
